FAERS Safety Report 8159805-6 (Version None)
Quarter: 2012Q1

REPORT INFORMATION
  Report Type: 
  Country: None (occurrence: None)
  Receive Date: 20120223
  Receipt Date: 20120215
  Transmission Date: 20120608
  Serious: Yes (Hospitalization)
  Sender: FDA-Public Use
  Company Number: US-BAYER-2012-016994

PATIENT
  Sex: Female

DRUGS (5)
  1. YAZ [Suspect]
     Dosage: UNK
  2. CIPROFLOXACIN [Concomitant]
     Indication: URINARY TRACT INFECTION
     Dosage: 250 MG, UNK
     Route: 048
  3. YAZ [Suspect]
     Dosage: UNK
  4. LEXAPRO [Concomitant]
  5. YASMIN [Suspect]

REACTIONS (2)
  - DEEP VEIN THROMBOSIS [None]
  - PULMONARY EMBOLISM [None]
